FAERS Safety Report 25106441 (Version 2)
Quarter: 2025Q1

REPORT INFORMATION
  Report Type: Spontaneous
  Country: US (occurrence: US)
  Receive Date: 20250321
  Receipt Date: 20250325
  Transmission Date: 20250408
  Serious: Yes (Life-Threatening, Other)
  Sender: BAXTER
  Company Number: US-BAXTER-2025BAX012735

PATIENT
  Sex: Male

DRUGS (3)
  1. NOREPINEPHRINE BITARTRATE [Suspect]
     Active Substance: NOREPINEPHRINE BITARTRATE
     Indication: Blood pressure decreased
     Route: 065
  2. NOREPINEPHRINE BITARTRATE [Suspect]
     Active Substance: NOREPINEPHRINE BITARTRATE
     Indication: Mean arterial pressure decreased
  3. PROPOFOL [Suspect]
     Active Substance: PROPOFOL
     Route: 065

REACTIONS (4)
  - Unresponsive to stimuli [Unknown]
  - Pupillary light reflex tests abnormal [Unknown]
  - Blood pressure decreased [Unknown]
  - Incorrect drug administration rate [Unknown]
